FAERS Safety Report 10015055 (Version 1)
Quarter: 2014Q1

REPORT INFORMATION
  Report Type: Spontaneous
  Country: US (occurrence: US)
  Receive Date: 20140317
  Receipt Date: 20140317
  Transmission Date: 20141002
  Serious: Yes (Other)
  Sender: FDA-Public Use
  Company Number: US-TEVA-468909USA

PATIENT
  Age: 62 Year
  Sex: Male

DRUGS (5)
  1. OLANZAPINE [Suspect]
     Indication: FEELING ABNORMAL
     Dosage: 5 MILLIGRAM DAILY; HS
     Route: 048
  2. WELLBUTRIN [Suspect]
  3. REMERON [Suspect]
  4. CARVEDILOL [Concomitant]
     Indication: HYPERTENSION
  5. AMLODIPINE BESYLATE [Concomitant]
     Dosage: 5 MILLIGRAM DAILY;

REACTIONS (3)
  - Hepatic failure [Not Recovered/Not Resolved]
  - Ammonia increased [Unknown]
  - Confusional state [Unknown]
